FAERS Safety Report 7179365-6 (Version None)
Quarter: 2010Q4

REPORT INFORMATION
  Report Type: 
  Country: None (occurrence: None)
  Receive Date: 20101217
  Receipt Date: 20101217
  Transmission Date: 20110411
  Serious: Yes (Other)
  Sender: FDA-Public Use
  Company Number: None

PATIENT
  Age: 65 Year
  Sex: Female
  Weight: 54.4316 kg

DRUGS (1)
  1. KEFLEX [Suspect]
     Indication: SINUSITIS
     Dosage: 1 CAPSULE 4 TIMES A DAY
     Dates: start: 20101117, end: 20101120

REACTIONS (3)
  - FORMICATION [None]
  - HAEMATOCHEZIA [None]
  - RASH [None]
